FAERS Safety Report 6107850-4 (Version None)
Quarter: 2009Q1

REPORT INFORMATION
  Report Type: 
  Country: None (occurrence: None)
  Receive Date: 20090305
  Receipt Date: 20090305
  Transmission Date: 20090719
  Serious: Yes (Hospitalization)
  Sender: FDA-Public Use
  Company Number: None

PATIENT
  Age: 46 Year
  Sex: Female
  Weight: 64.4 kg

DRUGS (2)
  1. TOPIRAMATE [Suspect]
     Indication: MIGRAINE PROPHYLAXIS
     Dosage: 50MG  X1 PO
     Route: 048
     Dates: start: 20090220, end: 20090220
  2. SUMATRIPTAN [Concomitant]

REACTIONS (8)
  - ABDOMINAL PAIN UPPER [None]
  - ANGLE CLOSURE GLAUCOMA [None]
  - HAEMODIALYSIS [None]
  - MIGRAINE [None]
  - RENAL TUBULAR NECROSIS [None]
  - TUBULOINTERSTITIAL NEPHRITIS [None]
  - URINARY TRACT INFECTION [None]
  - WHITE BLOOD CELL COUNT INCREASED [None]
